FAERS Safety Report 22104177 (Version 2)
Quarter: 2023Q2

REPORT INFORMATION
  Report Type: Spontaneous
  Country: HU (occurrence: HU)
  Receive Date: 20230316
  Receipt Date: 20230515
  Transmission Date: 20230722
  Serious: Yes (Hospitalization, Other)
  Sender: FDA-Public Use
  Company Number: HU-HALEON-HUCH2023HLN008335

PATIENT
  Age: 26 Week
  Sex: Male
  Weight: 0.99 kg

DRUGS (27)
  1. TACROLIMUS [Suspect]
     Active Substance: TACROLIMUS
     Indication: COVID-19
     Dosage: 4.5 MILLIGRAM, QD
     Route: 064
  2. ENOXAPARIN [Suspect]
     Active Substance: ENOXAPARIN
     Indication: Product used for unknown indication
     Dosage: 6 MILLILITER
     Route: 064
  3. IODINE [Suspect]
     Active Substance: IODINE
     Indication: Supplementation therapy
     Dosage: DAILY
     Route: 064
  4. METOPROLOL [Suspect]
     Active Substance: METOPROLOL
     Indication: Hypertension
     Dosage: 25 MILLIGRAM (2 . 25 MG)
     Route: 064
  5. METOPROLOL [Suspect]
     Active Substance: METOPROLOL
     Dosage: 50 MILLIGRAM, QD, 25 MG, BID
     Route: 064
  6. METOPROLOL [Suspect]
     Active Substance: METOPROLOL
     Dosage: 75 MILLIGRAM, QD, 25 MG, TID
     Route: 064
  7. VERAPAMIL [Suspect]
     Active Substance: VERAPAMIL HYDROCHLORIDE
     Indication: Hypertension
     Dosage: 80 MILLIGRAM, QD (40 MG, BID)
     Route: 064
  8. DEXAMETHASONE [Suspect]
     Active Substance: DEXAMETHASONE
     Indication: Maternal therapy to enhance foetal lung maturity
     Dosage: 24 MILLIGRAM, QD, 6 MG, QID
     Route: 064
  9. DEXAMETHASONE [Suspect]
     Active Substance: DEXAMETHASONE
     Indication: Prophylaxis
  10. PANTOTHENIC ACID [Suspect]
     Active Substance: PANTOTHENIC ACID
     Indication: Supplementation therapy
     Dosage: UNK
     Route: 064
  11. VITAMIN B1 [Suspect]
     Active Substance: THIAMINE HYDROCHLORIDE
     Indication: Supplementation therapy
     Dosage: UNK, QD (DAILY)
     Route: 064
  12. NIACIN [Suspect]
     Active Substance: NIACIN
     Indication: Supplementation therapy
     Dosage: UNK, QD
     Route: 064
  13. VITAMIN C [Suspect]
     Active Substance: ASCORBIC ACID
     Indication: Supplementation therapy
     Dosage: UNK, QD (DAILY)
     Route: 064
  14. LEVOMEFOLATE CALCIUM [Suspect]
     Active Substance: LEVOMEFOLATE CALCIUM
     Indication: Supplementation therapy
     Dosage: UNK, QD (DAILY)
     Route: 064
  15. PREDNISOLONE [Suspect]
     Active Substance: PREDNISOLONE
     Indication: COVID-19
     Dosage: 7.5 MILLIGRAM
     Route: 064
  16. VITAMIN B2 [Suspect]
     Active Substance: RIBOFLAVIN
     Indication: Supplementation therapy
     Dosage: UNK, QD (DAILY)
     Route: 064
  17. VITAMIN D3 [Suspect]
     Active Substance: CHOLECALCIFEROL
     Indication: Supplementation therapy
     Dosage: UNK, QD (DAILY)
     Route: 064
  18. DOCONEXENT [Suspect]
     Active Substance: DOCONEXENT
     Indication: Supplementation therapy
     Dosage: UNK, QD (DAILY)
     Route: 064
  19. NIFEDIPINE [Suspect]
     Active Substance: NIFEDIPINE
     Indication: Hypertension
     Dosage: 40 MILLIGRAM, QD (20MG BID)
     Route: 064
  20. METHYLDOPA [Suspect]
     Active Substance: METHYLDOPA
     Indication: Hypertension
     Dosage: 750 MILLIGRAM, QD (250 MG, TID)
     Route: 064
  21. METHYLDOPA [Suspect]
     Active Substance: METHYLDOPA
     Dosage: 1000 MILLIGRAM, QD, (250 MG, QID)
     Route: 064
  22. BIOTIN [Suspect]
     Active Substance: BIOTIN
     Indication: Supplementation therapy
     Dosage: UNK, QD (DAILY)
     Route: 064
  23. ASPIRIN [Suspect]
     Active Substance: ASPIRIN
     Indication: Product used for unknown indication
     Dosage: 100 MILLIGRAM, QD
     Route: 064
  24. FOLIC ACID [Suspect]
     Active Substance: FOLIC ACID
     Indication: Supplementation therapy
     Dosage: UNK, QD (DAILY)
     Route: 064
  25. VITAMIN B12 [Suspect]
     Active Substance: CYANOCOBALAMIN
     Indication: Supplementation therapy
     Dosage: UNK, QD (DAILY)
     Route: 064
  26. VITAMIN B6 [Suspect]
     Active Substance: PYRIDOXINE HYDROCHLORIDE
     Indication: Supplementation therapy
     Dosage: UNK, QD (DAILY)
     Route: 064
  27. VITAMIN E [Suspect]
     Active Substance: .ALPHA.-TOCOPHEROL
     Indication: Supplementation therapy
     Dosage: UNK, QD (DAILY)
     Route: 064

REACTIONS (7)
  - Foetal growth restriction [Unknown]
  - Diastolic dysfunction [Unknown]
  - Premature baby [Unknown]
  - Intraventricular haemorrhage [Unknown]
  - Retinopathy [Unknown]
  - Foetal vascular malperfusion [Unknown]
  - Foetal exposure during pregnancy [Unknown]
